FAERS Safety Report 20503454 (Version 3)
Quarter: 2022Q1

REPORT INFORMATION
  Report Type: Report from Study
  Country: GB (occurrence: GB)
  Receive Date: 20220222
  Receipt Date: 20220315
  Transmission Date: 20220424
  Serious: Yes (Hospitalization, Other)
  Sender: FDA-Public Use
  Company Number: GB-KYOWAKIRIN-2022BKK002068

PATIENT

DRUGS (2)
  1. BUROSUMAB [Suspect]
     Active Substance: BUROSUMAB
     Indication: Product used for unknown indication
     Dosage: 30 MG, 2 WKLY
     Route: 065
     Dates: end: 2022
  2. BUROSUMAB [Suspect]
     Active Substance: BUROSUMAB
     Dosage: 40 MG, 2 WKLY
     Route: 065
     Dates: start: 2022

REACTIONS (1)
  - Immobile [Unknown]

NARRATIVE: CASE EVENT DATE: 20220214
